FAERS Safety Report 5847658-8 (Version None)
Quarter: 2008Q3

REPORT INFORMATION
  Report Type: 
  Country: None (occurrence: None)
  Receive Date: 20080814
  Receipt Date: 20080730
  Transmission Date: 20090109
  Serious: Yes (Hospitalization)
  Sender: FDA-Public Use
  Company Number: MEDI-0006595

PATIENT
  Age: 19 Month
  Weight: 9 kg

DRUGS (5)
  1. SYNAGIS [Suspect]
     Dates: start: 20070901, end: 20071011
  2. SYNAGIS [Suspect]
     Dates: start: 20070901
  3. SYNAGIS [Suspect]
     Dates: start: 20071119
  4. SYNAGIS [Suspect]
     Dates: start: 20071221
  5. SYNAGIS [Suspect]
     Dates: start: 20080128

REACTIONS (4)
  - ASTHMA [None]
  - BRONCHIAL HYPERREACTIVITY [None]
  - INGUINAL HERNIA [None]
  - OTITIS MEDIA ACUTE [None]
